FAERS Safety Report 4433088-2 (Version None)
Quarter: 2004Q3

REPORT INFORMATION
  Report Type: 
  Country: None (occurrence: None)
  Receive Date: 20040823
  Receipt Date: 20040803
  Transmission Date: 20050211
  Serious: Yes (Hospitalization, Other)
  Sender: FDA-Public Use
  Company Number: ZANA001328

PATIENT
  Age: 69 Year
  Sex: Female

DRUGS (3)
  1. ZANAFLEX [Suspect]
     Indication: MUSCLE SPASTICITY
     Dosage: 4 MG ORAL
     Route: 048
     Dates: start: 20040127, end: 20040203
  2. COPAXONE [Suspect]
     Indication: MULTIPLE SCLEROSIS
     Dosage: 20 MG DAILY, SUBCUTANEOUS
     Route: 058
     Dates: start: 20020128, end: 20040203
  3. BACLOFEN [Suspect]
     Indication: MUSCLE SPASTICITY
     Dosage: 14 TO 20 MG TABLETS, ORAL
     Route: 048

REACTIONS (10)
  - AMNESIA [None]
  - BLOOD CREATINE PHOSPHOKINASE INCREASED [None]
  - CAROTID ARTERY STENOSIS [None]
  - CONFUSIONAL STATE [None]
  - DELIRIUM [None]
  - ENCEPHALOPATHY [None]
  - MENTAL STATUS CHANGES [None]
  - OVERDOSE [None]
  - PAIN IN EXTREMITY [None]
  - URINARY TRACT INFECTION [None]
